FAERS Safety Report 6530052-4 (Version None)
Quarter: 2010Q1

REPORT INFORMATION
  Report Type: 
  Country: None (occurrence: None)
  Receive Date: 20100104
  Receipt Date: 20091121
  Transmission Date: 20100710
  Serious: Yes (Other)
  Sender: FDA-Public Use
  Company Number: 2009SP003413

PATIENT
  Age: 77 Year
  Sex: Male
  Weight: 101.6 kg

DRUGS (8)
  1. OMNARIS [Suspect]
     Indication: SINUS DISORDER
     Dosage: 200 UG; NASAL
     Route: 045
     Dates: start: 20090601, end: 20090101
  2. GLYBURIDE (CON.) [Concomitant]
  3. METFORMIN (CON.) [Concomitant]
  4. FINASTERIDE (CON.) [Concomitant]
  5. ALLOPURINOL (CON.) [Concomitant]
  6. CENTRUM SILVER /01292501/ (CON.) [Concomitant]
  7. TYLENOL /00020001/ (CON.) [Concomitant]
  8. PREV MEDS [Concomitant]

REACTIONS (2)
  - ANOSMIA [None]
  - MULTIPLE MYELOMA [None]
